FAERS Safety Report 20074316 (Version 1)
Quarter: 2021Q4

REPORT INFORMATION
  Report Type: Spontaneous
  Country: US (occurrence: US)
  Receive Date: 20211116
  Receipt Date: 20211116
  Transmission Date: 20220303
  Serious: Yes (Other)
  Sender: FDA-Public Use
  Company Number: US-PFIZER INC-202101151446

PATIENT
  Age: 74 Year
  Sex: Female

DRUGS (1)
  1. XELJANZ XR [Suspect]
     Active Substance: TOFACITINIB CITRATE
     Indication: Rheumatoid arthritis
     Dosage: 11 MG, DAILY
     Route: 048
     Dates: start: 202107

REACTIONS (4)
  - Rheumatoid arthritis [Unknown]
  - Drug ineffective [Unknown]
  - Joint swelling [Recovering/Resolving]
  - Skin depigmentation [Not Recovered/Not Resolved]

NARRATIVE: CASE EVENT DATE: 20210101
